FAERS Safety Report 5541535-8 (Version None)
Quarter: 2007Q4

REPORT INFORMATION
  Report Type: 
  Country: None (occurrence: None)
  Receive Date: 20071210
  Receipt Date: 20071128
  Transmission Date: 20080405
  Serious: Yes (Hospitalization, Other)
  Sender: FDA-Public Use
  Company Number: PHHO2007DE19589

PATIENT
  Weight: 73.3 kg

DRUGS (5)
  1. ZOLEDRONIC ACID [Suspect]
     Indication: OSTEOPOROSIS
     Dosage: 5 MG
     Route: 042
     Dates: start: 20070828
  2. L-THYROXIN [Concomitant]
     Indication: HYPOTHYROIDISM
     Dosage: 0.75 MG, QD
     Dates: start: 19890101
  3. CARVEDILOL [Concomitant]
     Indication: HYPERTENSION
     Dosage: 6.25 MG, QD
     Dates: start: 20060101
  4. VOLTAREN [Concomitant]
     Indication: SPINAL OSTEOARTHRITIS
     Dosage: 0.5 MG, PRN
     Dates: start: 20030101
  5. OEKOLP [Concomitant]
     Dosage: 0.5 MG
     Dates: start: 19900101

REACTIONS (4)
  - ARTHRALGIA [None]
  - LIVER DISORDER [None]
  - MYALGIA [None]
  - RHEUMATOID ARTHRITIS [None]
